FAERS Safety Report 8718417 (Version 2)
Quarter: 2013Q4

REPORT INFORMATION
  Report Type: Spontaneous
  Country: US (occurrence: US)
  Receive Date: 20120810
  Receipt Date: 20131031
  Transmission Date: 20140711
  Serious: No
  Sender: FDA-Public Use
  Company Number: US-009507513-2012SP025142

PATIENT
  Age: 85 Year
  Sex: Female
  Weight: 57.14 kg

DRUGS (6)
  1. MIRALAX [Suspect]
     Indication: PRODUCT USED FOR UNKNOWN INDICATION
     Dosage: UNK UNK, UNKNOWN
     Route: 048
     Dates: start: 2001, end: 2012
  2. MIRALAX [Suspect]
     Indication: MEDICAL OBSERVATION
  3. GLUCOSAMINE [Concomitant]
     Indication: ARTHRITIS
     Dosage: UNK, UNKNOWN
  4. CHONDROITIN [Concomitant]
     Indication: ARTHRITIS
     Dosage: UNK, UNKNOWN
  5. VITAMIN B (UNSPECIFIED) [Concomitant]
     Indication: ARTHRITIS
     Dosage: UNK, UNKNOWN
  6. XANTHOPHYLL [Concomitant]
     Indication: ARTHRITIS
     Dosage: UNK, UNKNOWN

REACTIONS (1)
  - Drug effect decreased [Unknown]
